FAERS Safety Report 7244141-2 (Version None)
Quarter: 2011Q1

REPORT INFORMATION
  Report Type: 
  Country: None (occurrence: None)
  Receive Date: 20110119
  Receipt Date: 20110119
  Transmission Date: 20110831
  Serious: Yes (Hospitalization)
  Sender: FDA-Public Use
  Company Number: None

PATIENT
  Sex: Male
  Weight: 66.5 kg

DRUGS (3)
  1. OMEPRAZOLE [Suspect]
     Indication: GASTROOESOPHAGEAL REFLUX DISEASE
     Dosage: 40MG DAILY PO
     Route: 048
     Dates: start: 20090501, end: 20110118
  2. CLOPIDOGREL [Suspect]
     Indication: THROMBOSIS IN DEVICE
     Dosage: 75MG DAILY PO
     Route: 048
     Dates: start: 20101225, end: 20110118
  3. CLOPIDOGREL [Suspect]
     Indication: PERIPHERAL ARTERIAL OCCLUSIVE DISEASE
     Dosage: 75MG DAILY PO
     Route: 048
     Dates: start: 20101225, end: 20110118

REACTIONS (7)
  - DUODENITIS [None]
  - THROMBOSIS IN DEVICE [None]
  - FALL [None]
  - EROSIVE DUODENITIS [None]
  - MELAENA [None]
  - HAEMATOCRIT DECREASED [None]
  - OESOPHAGITIS [None]
